FAERS Safety Report 9767568 (Version 1)
Quarter: 2013Q4

REPORT INFORMATION
  Report Type: Spontaneous
  Country: US (occurrence: US)
  Receive Date: 20131217
  Receipt Date: 20131217
  Transmission Date: 20140711
  Serious: No
  Sender: FDA-Public Use
  Company Number: US-GILEAD-2009-0025193

PATIENT
  Sex: Male

DRUGS (1)
  1. VIREAD [Suspect]
     Indication: ACUTE HEPATITIS B

REACTIONS (2)
  - Intentional drug misuse [Unknown]
  - Nausea [Recovered/Resolved]
